FAERS Safety Report 6341122-8 (Version None)
Quarter: 2009Q3

REPORT INFORMATION
  Report Type: 
  Country: None (occurrence: None)
  Receive Date: 20090904
  Receipt Date: 20090112
  Transmission Date: 20100115
  Serious: No
  Sender: FDA-Public Use
  Company Number: A0763236A

PATIENT
  Age: 61 Year
  Sex: Male

DRUGS (8)
  1. REQUIP XL [Suspect]
     Indication: PARKINSON'S DISEASE
     Dosage: 2MG PER DAY
     Route: 048
     Dates: start: 20090108
  2. LAMICTAL [Concomitant]
  3. PRISTIQ [Concomitant]
  4. DEPAKOTE [Concomitant]
  5. LUNESTA [Concomitant]
  6. SEROQUEL [Concomitant]
  7. CRESTOR [Concomitant]
  8. DIAZEPAM [Concomitant]

REACTIONS (2)
  - DIZZINESS [None]
  - FATIGUE [None]
